FAERS Safety Report 24913814 (Version 3)
Quarter: 2025Q3

REPORT INFORMATION
  Report Type: Spontaneous
  Country: US (occurrence: US)
  Receive Date: 20250202
  Receipt Date: 20250812
  Transmission Date: 20251020
  Serious: No
  Sender: SANOFI AVENTIS
  Company Number: US-SA-2025SA031184

PATIENT
  Age: 59 Year
  Sex: Female

DRUGS (2)
  1. DUPIXENT [Suspect]
     Active Substance: DUPILUMAB
     Indication: Asthma
     Dosage: 200 MG, QOW
     Route: 058
     Dates: start: 202411
  2. CIMZIA [Concomitant]
     Active Substance: CERTOLIZUMAB PEGOL

REACTIONS (4)
  - Joint swelling [Unknown]
  - Condition aggravated [Unknown]
  - Arthralgia [Unknown]
  - Asthma [Unknown]

NARRATIVE: CASE EVENT DATE: 20241201
